FAERS Safety Report 11926564 (Version 1)
Quarter: 2016Q1

REPORT INFORMATION
  Report Type: Spontaneous
  Country: US (occurrence: US)
  Receive Date: 20160119
  Receipt Date: 20160119
  Transmission Date: 20160526
  Serious: Yes (Life-Threatening, Hospitalization, Other)
  Sender: FDA-Public Use
  Company Number: US-ACTAVIS-2016-00867

PATIENT
  Age: 44 Year
  Sex: Female

DRUGS (3)
  1. ATENOLOL (WATSON LABORATORIES) [Suspect]
     Active Substance: ATENOLOL
     Indication: INTENTIONAL OVERDOSE
     Dosage: 4.5 G, TOTAL
     Route: 048
  2. CHLORTHALIDONE (WATSON LABORATORIES) [Suspect]
     Active Substance: CHLORTHALIDONE
     Indication: INTENTIONAL OVERDOSE
     Dosage: 2.25 G, TOTAL
     Route: 048
  3. LISINOPRIL (WATSON LABORATORIES) [Suspect]
     Active Substance: LISINOPRIL
     Indication: INTENTIONAL OVERDOSE
     Dosage: UNKNOWN QUANTITY OF 40 MG LISINOPRIL TABLETS
     Route: 048

REACTIONS (8)
  - Hyperglycaemia [Unknown]
  - Bradycardia [Recovered/Resolved]
  - Cardiogenic shock [Recovered/Resolved]
  - Acute respiratory distress syndrome [Recovered/Resolved]
  - Coma [Recovered/Resolved]
  - Intentional overdose [Recovered/Resolved]
  - Hypotension [Recovered/Resolved]
  - Renal failure [Recovered/Resolved]
